FAERS Safety Report 9633858 (Version 1)
Quarter: 2013Q4

REPORT INFORMATION
  Report Type: Report from Study
  Country: CZ (occurrence: CZ)
  Receive Date: 20131021
  Receipt Date: 20131021
  Transmission Date: 20140711
  Serious: Yes (Hospitalization)
  Sender: FDA-Public Use
  Company Number: CZ-JNJFOC-20131008485

PATIENT
  Age: 27 Year
  Sex: Male

DRUGS (4)
  1. SIMPONI [Suspect]
     Indication: RHEUMATOID ARTHRITIS
     Route: 058
     Dates: start: 20120511
  2. MEDROL [Concomitant]
     Route: 065
  3. METOJECT [Concomitant]
     Route: 065
  4. SALAZOPYRIN [Concomitant]
     Route: 065

REACTIONS (1)
  - Amyloidosis [Not Recovered/Not Resolved]
